FAERS Safety Report 9537993 (Version 2)
Quarter: 2013Q4

REPORT INFORMATION
  Report Type: Report from Study
  Country: US (occurrence: US)
  Receive Date: 20130919
  Receipt Date: 20131001
  Transmission Date: 20140711
  Serious: Yes (Congenital Anomaly, Other)
  Sender: FDA-Public Use
  Company Number: US-GILEAD-2013-0083557

PATIENT
  Sex: 0

DRUGS (9)
  1. EMTRICITABINE/TENOFOVIR DISOPROXIL FUMARATE [Suspect]
     Indication: HIV INFECTION
     Dosage: 1 DF, QD
     Route: 064
  2. PREZISTA [Suspect]
     Indication: HIV INFECTION
     Dosage: 1200 MG, QD
     Route: 064
  3. INTELENCE [Suspect]
     Indication: HIV INFECTION
     Dosage: UNK
     Route: 064
  4. ISENTRESS [Suspect]
     Indication: HIV INFECTION
     Dosage: 800 MG, QD
     Route: 064
  5. NORVIR [Suspect]
     Indication: HIV INFECTION
     Dosage: 200 MG, QD
     Route: 064
  6. NORVIR [Suspect]
     Dosage: 800 MG, QD
     Route: 064
  7. APTIVUS [Suspect]
     Indication: HIV INFECTION
     Dosage: 1000 MG, QD
     Route: 064
  8. ZIDOVUDINE [Suspect]
     Indication: HIV INFECTION
     Dosage: UNK
     Route: 064
  9. INSULIN ASPART [Concomitant]
     Indication: GESTATIONAL DIABETES
     Route: 064

REACTIONS (15)
  - Tethered cord syndrome [Unknown]
  - Lipodystrophy acquired [Unknown]
  - Genitalia external ambiguous [Unknown]
  - Gastrointestinal disorder congenital [Unknown]
  - Exomphalos [Unknown]
  - Caudal regression syndrome [Unknown]
  - Meconium stain [Unknown]
  - Meningomyelocele [Unknown]
  - Sepsis [Unknown]
  - Blood iron decreased [Unknown]
  - Umbilical cord abnormality [Unknown]
  - Erythema [Unknown]
  - Congenital musculoskeletal anomaly [Unknown]
  - Cloacal exstrophy [Unknown]
  - Bladder agenesis [Unknown]
